FAERS Safety Report 21400870 (Version 1)
Quarter: 2022Q4

REPORT INFORMATION
  Report Type: Spontaneous
  Country: JP (occurrence: JP)
  Receive Date: 20221003
  Receipt Date: 20221003
  Transmission Date: 20230112
  Serious: Yes (Death, Hospitalization, Other)
  Sender: FDA-Public Use
  Company Number: JP-BRISTOL-MYERS SQUIBB COMPANY-2022-112364

PATIENT
  Age: 66 Year

DRUGS (1)
  1. ABECMA [Suspect]
     Active Substance: IDECABTAGENE VICLEUCEL
     Indication: Plasma cell myeloma
     Dosage: ONLY ONCE, ADMINISTRATION OF THE WHOLE AMOUNT
     Route: 041
     Dates: start: 20220817, end: 20220817

REACTIONS (2)
  - Cytokine release syndrome [Recovered/Resolved]
  - Post procedural cellulitis [Fatal]

NARRATIVE: CASE EVENT DATE: 20220818
